FAERS Safety Report 24742672 (Version 1)
Quarter: 2024Q4

REPORT INFORMATION
  Report Type: Spontaneous
  Country: JP (occurrence: JP)
  Receive Date: 20241217
  Receipt Date: 20241217
  Transmission Date: 20250114
  Serious: Yes (Other)
  Sender: CHEPLAPHARM
  Company Number: None

PATIENT
  Age: 48 Year
  Sex: Male

DRUGS (4)
  1. VALGANCICLOVIR [Suspect]
     Active Substance: VALGANCICLOVIR
     Indication: Cytomegalovirus duodenitis
  2. BICTEGRAVIR SODIUM [Concomitant]
     Active Substance: BICTEGRAVIR SODIUM
     Indication: HIV infection
  3. EMTRICITABINE [Concomitant]
     Active Substance: EMTRICITABINE
     Indication: HIV infection
  4. TENOFOVIR ALAFENAMIDE FUMARATE [Concomitant]
     Active Substance: TENOFOVIR ALAFENAMIDE FUMARATE
     Indication: HIV infection

REACTIONS (4)
  - Diffuse large B-cell lymphoma [Recovered/Resolved]
  - Cytomegalovirus gastroenteritis [Recovered/Resolved]
  - Cytopenia [Recovered/Resolved]
  - Off label use [Unknown]
